FAERS Safety Report 12729175 (Version 1)
Quarter: 2016Q3

REPORT INFORMATION
  Report Type: Spontaneous
  Country: US (occurrence: US)
  Receive Date: 20160908
  Receipt Date: 20160908
  Transmission Date: 20161109
  Serious: Yes (Other)
  Sender: FDA-Public Use
  Company Number: None

PATIENT
  Age: 55 Year
  Sex: Male
  Weight: 67.5 kg

DRUGS (8)
  1. FLUOROURACIL. [Concomitant]
     Active Substance: FLUOROURACIL
  2. OXALIPLATIN HOSPIRA 100MG/20ML [Suspect]
     Active Substance: OXALIPLATIN
     Indication: PANCREATIC CARCINOMA
     Dosage: OTHER STRENGTH:;OTHER DOSE:;OTHER FREQUENCY:ONE DOSE;OTHER ROUTE:
     Route: 041
  3. OXALIPLATIN 50MG/10ML HOSPIRA [Suspect]
     Active Substance: OXALIPLATIN
     Dosage: OTHER STRENGTH:;OTHER DOSE:;OTHER FREQUENCY:ONE DOSE;OTHER ROUTE:
     Route: 041
  4. ALOXI [Concomitant]
     Active Substance: PALONOSETRON HYDROCHLORIDE
  5. EMEND [Concomitant]
     Active Substance: APREPITANT
  6. DECADRON [Concomitant]
     Active Substance: DEXAMETHASONE
  7. IRINOTECAN [Concomitant]
     Active Substance: IRINOTECAN
  8. LEUCOVORIN. [Concomitant]
     Active Substance: LEUCOVORIN

REACTIONS (3)
  - Tongue disorder [None]
  - Dysarthria [None]
  - Feeling abnormal [None]

NARRATIVE: CASE EVENT DATE: 20160713
